FAERS Safety Report 5605115-8 (Version None)
Quarter: 2008Q1

REPORT INFORMATION
  Report Type: 
  Country: None (occurrence: None)
  Receive Date: 20080111
  Receipt Date: 20070720
  Transmission Date: 20080703
  Serious: Yes (Disabling, Other)
  Sender: FDA-Public Use
  Company Number: HQWYE254220JUL04

PATIENT
  Age: 48 Year
  Sex: Female

DRUGS (3)
  1. PREMPRO [Suspect]
     Indication: DRUG USE FOR UNKNOWN INDICATION
  2. ESTRACE [Suspect]
  3. PREMARIN [Suspect]
     Indication: DRUG USE FOR UNKNOWN INDICATION

REACTIONS (2)
  - THROMBOPHLEBITIS SUPERFICIAL [None]
  - THROMBOSIS [None]
